FAERS Safety Report 4830765-6 (Version None)
Quarter: 2005Q4

REPORT INFORMATION
  Report Type: 
  Country: None (occurrence: None)
  Receive Date: 20051117
  Receipt Date: 20050930
  Transmission Date: 20060501
  Serious: Yes (Death, Other)
  Sender: FDA-Public Use
  Company Number: US-MERCK-0510USA01904

PATIENT
  Age: 88 Year
  Sex: Male
  Weight: 64 kg

DRUGS (6)
  1. VIOXX [Suspect]
     Indication: NON-CARDIAC CHEST PAIN
     Route: 048
     Dates: start: 20040805
  2. ASPIRIN [Concomitant]
     Route: 065
  3. DIURETIC (UNSPECIFIED) [Concomitant]
     Route: 065
  4. VITAMINS (UNSPECIFIED) [Concomitant]
     Route: 065
  5. [THERAPY UNSPECIFIED] [Concomitant]
     Route: 065
  6. ISORBID [Concomitant]
     Route: 065

REACTIONS (2)
  - DEATH [None]
  - MYOCARDIAL INFARCTION [None]
